FAERS Safety Report 4822571-3 (Version None)
Quarter: 2005Q4

REPORT INFORMATION
  Report Type: 
  Country: None (occurrence: None)
  Receive Date: 20051104
  Receipt Date: 20051026
  Transmission Date: 20060501
  Serious: Yes (Hospitalization)
  Sender: FDA-Public Use
  Company Number: 2005149306

PATIENT
  Sex: Male

DRUGS (4)
  1. FRAGMIN [Suspect]
     Indication: ILL-DEFINED DISORDER
  2. LOVENOX [Suspect]
     Indication: ILL-DEFINED DISORDER
  3. FRAXIPARINE (HEPARIN-FRACTION, CALCIUM SALT) [Suspect]
     Indication: ILL-DEFINED DISORDER
  4. PARACETAMOL (PARACETAMOL) [Concomitant]

REACTIONS (3)
  - ERYTHEMA [None]
  - HERNIA REPAIR [None]
  - SKIN REACTION [None]
